FAERS Safety Report 9797799 (Version 1)
Quarter: 2014Q1

REPORT INFORMATION
  Report Type: Spontaneous
  Country: US (occurrence: US)
  Receive Date: 20140106
  Receipt Date: 20140106
  Transmission Date: 20141002
  Serious: Yes (Other)
  Sender: FDA-Public Use
  Company Number: US-TARO PHARMACEUTICALS U.S.A., INC-2013SUN05321

PATIENT
  Age: 4 Year
  Sex: 0

DRUGS (1)
  1. IMIQUIMOD CREAM, 5% [Suspect]
     Indication: SKIN PAPILLOMA
     Dosage: 5 TIMES A WEEK
     Route: 061

REACTIONS (2)
  - Mouth ulceration [Recovered/Resolved]
  - Off label use [Unknown]
